FAERS Safety Report 10892993 (Version 1)
Quarter: 2015Q1

REPORT INFORMATION
  Report Type: Spontaneous
  Country: US (occurrence: US)
  Receive Date: 20150306
  Receipt Date: 20150306
  Transmission Date: 20150721
  Serious: No
  Sender: FDA-Public Use
  Company Number: US-AMGEN-USASP2014037978

PATIENT
  Age: 57 Year
  Sex: Female

DRUGS (1)
  1. ENBREL [Suspect]
     Active Substance: ETANERCEPT
     Indication: JUVENILE IDIOPATHIC ARTHRITIS
     Dosage: 25 MG, 2 TIMES/WK
     Route: 065
     Dates: start: 199912, end: 201404

REACTIONS (10)
  - Pain [Not Recovered/Not Resolved]
  - Fatigue [Not Recovered/Not Resolved]
  - Arthralgia [Not Recovered/Not Resolved]
  - Finger deformity [Not Recovered/Not Resolved]
  - Stress [Not Recovered/Not Resolved]
  - Gait disturbance [Not Recovered/Not Resolved]
  - Arthritis [Not Recovered/Not Resolved]
  - Mobility decreased [Not Recovered/Not Resolved]
  - Grip strength decreased [Not Recovered/Not Resolved]
  - Exercise tolerance decreased [Not Recovered/Not Resolved]

NARRATIVE: CASE EVENT DATE: 201405
